FAERS Safety Report 10884407 (Version 1)
Quarter: 2015Q1

REPORT INFORMATION
  Report Type: Spontaneous
  Country: DE (occurrence: DE)
  Receive Date: 20150304
  Receipt Date: 20150304
  Transmission Date: 20150721
  Serious: Yes (Hospitalization)
  Sender: FDA-Public Use
  Company Number: DE-JNJFOC-20150213621

PATIENT
  Age: 61 Year
  Sex: Male
  Weight: 89 kg

DRUGS (4)
  1. UNACID PD [Concomitant]
     Active Substance: SULTAMICILLIN TOSYLATE
     Indication: PYREXIA
     Route: 065
  2. ZYTIGA [Suspect]
     Active Substance: ABIRATERONE ACETATE
     Indication: PROSTATE CANCER
     Route: 048
     Dates: start: 20141029, end: 20150107
  3. TRENANTONE [Concomitant]
     Active Substance: LEUPROLIDE ACETATE
     Indication: PROSTATE CANCER
     Route: 051
  4. DECORTIN [Suspect]
     Active Substance: PREDNISONE
     Indication: PROSTATE CANCER
     Route: 065
     Dates: start: 20150107

REACTIONS (3)
  - Renal failure [Recovering/Resolving]
  - Rhabdomyolysis [Recovering/Resolving]
  - Pain in extremity [Recovering/Resolving]

NARRATIVE: CASE EVENT DATE: 20150107
